FAERS Safety Report 5149623-5 (Version None)
Quarter: 2006Q4

REPORT INFORMATION
  Report Type: 
  Country: None (occurrence: None)
  Receive Date: 20061113
  Receipt Date: 20060620
  Transmission Date: 20070319
  Serious: No
  Sender: FDA-Public Use
  Company Number: S2006US10991

PATIENT
  Sex: Female

DRUGS (4)
  1. COREG [Suspect]
     Indication: DRUG USE FOR UNKNOWN INDICATION
  2. ISOSORBIDE MONONITRATE [Concomitant]
  3. LISINOPRIL [Concomitant]
  4. DIGITEK [Concomitant]

REACTIONS (1)
  - CARDIAC DISORDER [None]
